FAERS Safety Report 15206175 (Version 2)
Quarter: 2018Q3

REPORT INFORMATION
  Report Type: Report from Study
  Country: ES (occurrence: ES)
  Receive Date: 20180727
  Receipt Date: 20180827
  Transmission Date: 20181010
  Serious: Yes (Hospitalization)
  Sender: FDA-Public Use
  Company Number: ES-ROCHE-2157003

PATIENT
  Age: 72 Year
  Sex: Female
  Weight: 77.7 kg

DRUGS (23)
  1. ADIRO [Concomitant]
     Active Substance: ASPIRIN
  2. OMEPRAZOL NUPRAL [Concomitant]
  3. DONEPEZIL. [Concomitant]
     Active Substance: DONEPEZIL
     Indication: DEMENTIA ALZHEIMER^S TYPE
  4. NOLOTIL [Concomitant]
  5. PACLITAXEL. [Suspect]
     Active Substance: PACLITAXEL
     Indication: MALIGNANT PERITONEAL NEOPLASM
     Dosage: DATE OF MOST RECENT DOSE 270MG OF PACLITAXEL PRIOR TO SAE ONSET WAS 11/JUL/2018
     Route: 042
     Dates: start: 20180530
  6. FENTANYL. [Concomitant]
     Active Substance: FENTANYL
  7. CARBOPLATIN. [Suspect]
     Active Substance: CARBOPLATIN
     Indication: MALIGNANT PERITONEAL NEOPLASM
     Dosage: AT A DOSE TO ACHIEVE TARGET AREA UNDER THE CURVE (AUC) OF 6 MILLIGRAMS PER MILLILITER*MINUTE (MG/ML*
     Route: 042
     Dates: start: 20180530
  8. QUETIAPINA [Concomitant]
     Active Substance: QUETIAPINE
  9. SIMVASTATIN. [Concomitant]
     Active Substance: SIMVASTATIN
     Indication: BLOOD CHOLESTEROL
  10. ORAMORPH [Concomitant]
     Active Substance: MORPHINE SULFATE
     Indication: PAIN
  11. CEFDITORENO [Concomitant]
     Active Substance: CEFDITOREN
     Route: 065
     Dates: end: 20180620
  12. PRISTIQ EXTENDED?RELEASE [Concomitant]
     Active Substance: DESVENLAFAXINE SUCCINATE
     Route: 065
     Dates: start: 20180626
  13. LOSARTAN. [Concomitant]
     Active Substance: LOSARTAN
     Indication: HYPERTENSION
  14. ATENOLOL. [Concomitant]
     Active Substance: ATENOLOL
     Indication: HYPERTENSION
  15. GABAPENTINA [Concomitant]
     Active Substance: GABAPENTIN
  16. TIANEPTINA [Concomitant]
     Indication: DEPRESSION
  17. CYMBALTA [Concomitant]
     Active Substance: DULOXETINE HYDROCHLORIDE
     Indication: DEPRESSION
  18. HIDROFEROL [Concomitant]
     Active Substance: CALCIFEDIOL
  19. BLINDED ATEZOLIZUMAB [Suspect]
     Active Substance: ATEZOLIZUMAB
     Indication: MALIGNANT PERITONEAL NEOPLASM
     Dosage: DATE OF MOST RECENT DOSE OF BLINDED ATEZOLIZUMAB PRIOR TO SAE ONSET WAS 11/JUL/2018
     Route: 042
     Dates: start: 20180530
  20. BEVACIZUMAB. [Suspect]
     Active Substance: BEVACIZUMAB
     Indication: MALIGNANT PERITONEAL NEOPLASM
     Dosage: DATE OF MOST RECENT DOSE 1290 MG OF BEVACIZUMAB PRIOR TO SAE ONSET WAS 30/MAY/2018
     Route: 042
     Dates: start: 20180530
  21. PARACETAMOL [Concomitant]
     Active Substance: ACETAMINOPHEN
  22. LORAZEPAM. [Concomitant]
     Active Substance: LORAZEPAM
  23. SEDOTIME [Concomitant]
     Indication: ANXIETY
     Route: 065
     Dates: start: 20180626

REACTIONS (1)
  - Cognitive disorder [Recovering/Resolving]

NARRATIVE: CASE EVENT DATE: 20180716
